FAERS Safety Report 20953809 (Version 1)
Quarter: 2022Q2

REPORT INFORMATION
  Report Type: Spontaneous
  Country: MA (occurrence: MA)
  Receive Date: 20220614
  Receipt Date: 20220614
  Transmission Date: 20220721
  Serious: Yes (Life-Threatening, Hospitalization, Other)
  Sender: FDA-Public Use
  Company Number: MA-SUN PHARMACEUTICAL INDUSTRIES LTD-2022R1-340049

PATIENT
  Sex: Male
  Weight: 1.34 kg

DRUGS (3)
  1. AMPICILLIN [Suspect]
     Active Substance: AMPICILLIN
     Indication: Antibiotic therapy
     Dosage: 2 GRAM
     Route: 064
  2. NICARDIPINE [Suspect]
     Active Substance: NICARDIPINE
     Indication: Gestational hypertension
     Dosage: UNK
     Route: 064
  3. BETAMETHASONE [Suspect]
     Active Substance: BETAMETHASONE
     Indication: Maternal therapy to enhance foetal lung maturity
     Dosage: 12 MILLIGRAM
     Route: 064

REACTIONS (6)
  - Resuscitation [Unknown]
  - Hypovolaemic shock [Recovering/Resolving]
  - Bradycardia [Recovering/Resolving]
  - Foetal exposure during pregnancy [Unknown]
  - Premature baby [Unknown]
  - Low birth weight baby [Unknown]
